FAERS Safety Report 16079267 (Version 3)
Quarter: 2021Q3

REPORT INFORMATION
  Report Type: Spontaneous
  Country: US (occurrence: US)
  Receive Date: 20190315
  Receipt Date: 20210705
  Transmission Date: 20211014
  Serious: Yes (Hospitalization)
  Sender: FDA-Public Use
  Company Number: US-VERTEX PHARMACEUTICALS-2019-002164

PATIENT
  Age: 14 Year
  Sex: Male

DRUGS (14)
  1. SYMDEKO [Suspect]
     Active Substance: IVACAFTOR\TEZACAFTOR
     Indication: CYSTIC FIBROSIS
     Dosage: 100MG TEZACAFTOR/150MG IVACAFTOR AM; 150MG IVACAFTOR PM
     Route: 048
     Dates: start: 20181009
  2. VITAMIN D3 [Concomitant]
     Active Substance: CHOLECALCIFEROL
  3. HYPERTONIC SALINE SOLUTION [Concomitant]
     Active Substance: SODIUM CHLORIDE
  4. FLOVENT [Concomitant]
     Active Substance: FLUTICASONE PROPIONATE
  5. SYMBICORT [Concomitant]
     Active Substance: BUDESONIDE\FORMOTEROL FUMARATE DIHYDRATE
  6. LORATADINE. [Concomitant]
     Active Substance: LORATADINE
  7. CLINDAMYCIN. [Concomitant]
     Active Substance: CLINDAMYCIN
  8. SERTRALINE [Concomitant]
     Active Substance: SERTRALINE HYDROCHLORIDE
  9. PULMOZYME [Concomitant]
     Active Substance: DORNASE ALFA
  10. OMEPRAZOLE. [Concomitant]
     Active Substance: OMEPRAZOLE
  11. RANITIDINE. [Concomitant]
     Active Substance: RANITIDINE
  12. CREON [Concomitant]
     Active Substance: PANCRELIPASE AMYLASE\PANCRELIPASE LIPASE\PANCRELIPASE PROTEASE
  13. TOBRAMYCIN. [Concomitant]
     Active Substance: TOBRAMYCIN
  14. SODIUM CHLORIDE. [Concomitant]
     Active Substance: SODIUM CHLORIDE

REACTIONS (5)
  - Pneumonia [Unknown]
  - Bronchiectasis [Unknown]
  - Staphylococcal infection [Unknown]
  - Pseudomonas infection [Unknown]
  - Infective pulmonary exacerbation of cystic fibrosis [Unknown]

NARRATIVE: CASE EVENT DATE: 2019
